FAERS Safety Report 10018237 (Version 1)
Quarter: 2014Q1

REPORT INFORMATION
  Report Type: Spontaneous
  Country: US (occurrence: US)
  Receive Date: 20140318
  Receipt Date: 20140318
  Transmission Date: 20141002
  Serious: Yes (Other)
  Sender: FDA-Public Use
  Company Number: US-BRISTOL-MYERS SQUIBB COMPANY-19468768

PATIENT
  Age: 73 Year
  Sex: Male
  Weight: 116.1 kg

DRUGS (10)
  1. ERBITUX [Suspect]
     Indication: SQUAMOUS CELL CARCINOMA
     Dates: start: 20130924
  2. TYLENOL [Concomitant]
  3. DEMADEX [Concomitant]
  4. FERROUS SULFATE [Concomitant]
  5. VITAMIN D3 [Concomitant]
  6. LISINOPRIL [Concomitant]
  7. METOPROLOL TARTRATE [Concomitant]
  8. ALLOPURINOL [Concomitant]
  9. ASPIRIN [Concomitant]
  10. OMEPRAZOLE [Concomitant]

REACTIONS (1)
  - Infusion related reaction [Unknown]
